FAERS Safety Report 24942175 (Version 1)
Quarter: 2025Q1

REPORT INFORMATION
  Report Type: Spontaneous
  Country: US (occurrence: US)
  Receive Date: 20250207
  Receipt Date: 20250207
  Transmission Date: 20250409
  Serious: No
  Sender: AMGEN
  Company Number: US-AMGEN-USASP2025023478

PATIENT
  Age: 52 Year
  Sex: Male

DRUGS (2)
  1. AIMOVIG [Suspect]
     Active Substance: ERENUMAB-AOOE
     Indication: Migraine
     Route: 065
  2. KESIMPTA [Suspect]
     Active Substance: OFATUMUMAB
     Indication: Multiple sclerosis
     Dosage: 20 MILLIGRAM, QMO (20MG/0.4ML)
     Route: 065

REACTIONS (5)
  - Hypoaesthesia [Unknown]
  - Tremor [Recovering/Resolving]
  - Nausea [Unknown]
  - Influenza [Recovering/Resolving]
  - Pain [Unknown]
